FAERS Safety Report 12877718 (Version 2)
Quarter: 2016Q4

REPORT INFORMATION
  Report Type: Spontaneous
  Country: US (occurrence: US)
  Receive Date: 20161024
  Receipt Date: 20161117
  Transmission Date: 20170207
  Serious: No
  Sender: FDA-Public Use
  Company Number: US-PFIZER INC-2016445621

PATIENT
  Age: 77 Year
  Sex: Male

DRUGS (1)
  1. SUTENT [Suspect]
     Active Substance: SUNITINIB MALATE
     Indication: PANCREATIC NEUROENDOCRINE TUMOUR
     Dosage: 37.5 MG, DAILY
     Route: 048
     Dates: start: 20160909

REACTIONS (9)
  - Paraesthesia [Unknown]
  - Cheilitis [Unknown]
  - Tongue discomfort [Unknown]
  - Lip pain [Unknown]
  - Glossodynia [Unknown]
  - Mucosal inflammation [Not Recovered/Not Resolved]
  - Oral mucosal erythema [Unknown]
  - Hypotension [Recovered/Resolved]
  - Oral pain [Unknown]
